FAERS Safety Report 4972143-5 (Version None)
Quarter: 2006Q2

REPORT INFORMATION
  Report Type: 
  Country: None (occurrence: None)
  Receive Date: 20060413
  Receipt Date: 20060331
  Transmission Date: 20061013
  Serious: Yes (Death)
  Sender: FDA-Public Use
  Company Number: AU-NOVOPROD-252053

PATIENT
  Age: 82 Year
  Sex: Female
  Weight: 76 kg

DRUGS (3)
  1. NOVOSEVEN [Suspect]
     Indication: POST PROCEDURAL HAEMORRHAGE
     Dosage: 7.2 MG, SINGLE
     Dates: start: 20050928
  2. TRASYLOL [Concomitant]
     Dates: start: 20050927
  3. PROTAMINE SULFATE [Concomitant]
     Dates: start: 20050927

REACTIONS (5)
  - CARDIOGENIC SHOCK [None]
  - CEREBROVASCULAR ACCIDENT [None]
  - MULTI-ORGAN FAILURE [None]
  - POST PROCEDURAL COMPLICATION [None]
  - RENAL FAILURE ACUTE [None]
